FAERS Safety Report 13119239 (Version 4)
Quarter: 2017Q1

REPORT INFORMATION
  Report Type: Spontaneous
  Country: US (occurrence: US)
  Receive Date: 20170116
  Receipt Date: 20170217
  Transmission Date: 20170428
  Serious: Yes (Hospitalization)
  Sender: FDA-Public Use
  Company Number: US-BAUSCH-BL-2017-001217

PATIENT
  Age: 66 Year
  Sex: Female

DRUGS (8)
  1. XIFAXAN [Suspect]
     Active Substance: RIFAXIMIN
     Indication: HEPATIC ENCEPHALOPATHY
  2. LACTULOSE. [Concomitant]
     Active Substance: LACTULOSE
     Indication: CONSTIPATION
     Dosage: 2-3 TABLESPOONS
     Route: 065
  3. LACTULOSE. [Concomitant]
     Active Substance: LACTULOSE
     Dosage: TOOK A LITTLE EXTRA
     Route: 065
  4. LANTUS [Concomitant]
     Active Substance: INSULIN GLARGINE
     Indication: PNEUMONIA
  5. LACTULOSE. [Concomitant]
     Active Substance: LACTULOSE
     Dosage: AS NEEDED
  6. XIFAXAN [Suspect]
     Active Substance: RIFAXIMIN
     Indication: HEPATIC CIRRHOSIS
     Route: 048
  7. XIFAXAN [Suspect]
     Active Substance: RIFAXIMIN
     Indication: HEPATIC FAILURE
  8. NOVOLOG [Concomitant]
     Active Substance: INSULIN ASPART
     Indication: LIVER DISORDER

REACTIONS (5)
  - Ammonia increased [Recovered/Resolved]
  - Cystitis [Recovered/Resolved]
  - Constipation [Recovered/Resolved]
  - Pneumonia [Recovered/Resolved]
  - Encephalopathy [Recovered/Resolved]

NARRATIVE: CASE EVENT DATE: 201609
